FAERS Safety Report 7281705-4 (Version None)
Quarter: 2011Q1

REPORT INFORMATION
  Report Type: 
  Country: None (occurrence: None)
  Receive Date: 20110208
  Receipt Date: 20110127
  Transmission Date: 20110831
  Serious: Yes (Hospitalization, Disabling)
  Sender: FDA-Public Use
  Company Number: US-ASTRAZENECA-2011SE04740

PATIENT
  Age: 688 Month
  Sex: Male

DRUGS (4)
  1. SEROQUEL [Suspect]
     Indication: ANXIETY DISORDER
     Route: 048
     Dates: start: 20080101
  2. SEROQUEL [Suspect]
     Indication: INSOMNIA
     Route: 048
     Dates: start: 20080101
  3. EFFEXOR [Concomitant]
  4. XANAX [Concomitant]

REACTIONS (2)
  - POOR PERIPHERAL CIRCULATION [None]
  - LEG AMPUTATION [None]
